FAERS Safety Report 9431948 (Version 2)
Quarter: 2013Q3

REPORT INFORMATION
  Report Type: Spontaneous
  Country: FR (occurrence: FR)
  Receive Date: 20130731
  Receipt Date: 20130829
  Transmission Date: 20140515
  Serious: Yes (Hospitalization, Other)
  Sender: FDA-Public Use
  Company Number: FR-ROCHE-1254973

PATIENT
  Age: 48 Year
  Sex: Female

DRUGS (3)
  1. ROCEPHINE [Suspect]
     Indication: OSTEITIS
     Dosage: POWDER FOR SOLUTION TO INJECTION
     Route: 065
     Dates: start: 20130318, end: 20130720
  2. FLAGYL [Suspect]
     Indication: OSTEITIS
     Dosage: 500 MG
     Route: 065
     Dates: start: 20130322, end: 20130720
  3. TARGOCID [Suspect]
     Indication: OSTEITIS
     Route: 065
     Dates: start: 20130430, end: 20130730

REACTIONS (4)
  - Hepatocellular injury [Not Recovered/Not Resolved]
  - Cholestasis [Not Recovered/Not Resolved]
  - Cholecystitis [Recovered/Resolved]
  - Cholelithiasis [Recovered/Resolved]
